FAERS Safety Report 4853694-0 (Version None)
Quarter: 2005Q4

REPORT INFORMATION
  Report Type: 
  Country: None (occurrence: None)
  Receive Date: 20051214
  Receipt Date: 20051207
  Transmission Date: 20060501
  Serious: Yes (Other)
  Sender: FDA-Public Use
  Company Number: PHBS2005ES18237

PATIENT
  Age: 37 Year
  Sex: Female

DRUGS (6)
  1. CYCLOSPORINE [Suspect]
     Indication: LIVER TRANSPLANT
     Route: 065
     Dates: start: 20041201
  2. ZIDOVUDINE [Concomitant]
     Route: 042
  3. STAVUDINE [Concomitant]
  4. LAMIVUDINE [Concomitant]
  5. TENOFOVIR [Concomitant]
  6. HEPATITIS B IMMUNE GLOBULIN (HUMAN) [Concomitant]
     Dosage: 1000 IU, QMO
     Route: 030

REACTIONS (3)
  - CAESAREAN SECTION [None]
  - DRUG EXPOSURE DURING PREGNANCY [None]
  - NORMAL NEWBORN [None]
